FAERS Safety Report 8068178-9 (Version None)
Quarter: 2012Q1

REPORT INFORMATION
  Report Type: 
  Country: None (occurrence: None)
  Receive Date: 20120124
  Receipt Date: 20110831
  Transmission Date: 20120608
  Serious: No
  Sender: FDA-Public Use
  Company Number: US-AMGEN-USASP2011044703

PATIENT
  Age: 80 Year
  Sex: Female

DRUGS (15)
  1. RETINOL [Concomitant]
     Dosage: UNK
  2. MAGNESIUM SULFATE [Concomitant]
     Dosage: UNK
  3. THIAMINE MONONITRATE [Concomitant]
     Dosage: UNK
  4. VITAMIN D [Concomitant]
     Dosage: UNK
  5. CALCIUM [Concomitant]
     Dosage: UNK
  6. ASCORBIC ACID [Concomitant]
     Dosage: UNK
  7. PROLIA [Suspect]
     Indication: OSTEOPOROSIS
     Dosage: 60 MG, Q6MO
     Dates: start: 20110311
  8. LEVOTHYROXINE SODIUM [Concomitant]
     Dosage: UNK
  9. VITAMIN B-12 [Concomitant]
     Dosage: UNK
  10. PYRIDOXINE HYDROCHLORIDE [Concomitant]
     Dosage: UNK
  11. RIBOFLAVIN [Concomitant]
     Dosage: UNK
  12. FOLIC ACID [Concomitant]
     Dosage: 1 MG, UNK
  13. FISH OIL [Concomitant]
     Dosage: UNK
  14. SIMVASTATIN [Concomitant]
     Dosage: UNK
  15. NICOTINAMIDE [Concomitant]
     Dosage: UNK

REACTIONS (2)
  - FATIGUE [None]
  - LAZINESS [None]
